FAERS Safety Report 18717551 (Version 1)
Quarter: 2021Q1

REPORT INFORMATION
  Report Type: Spontaneous
  Country: JP (occurrence: JP)
  Receive Date: 20210108
  Receipt Date: 20210108
  Transmission Date: 20210419
  Serious: Yes (Hospitalization)
  Sender: FDA-Public Use
  Company Number: JP-MYLANLABS-2021M1000775

PATIENT
  Age: 66 Year
  Sex: Female

DRUGS (4)
  1. TRASTUZUMAB. [Suspect]
     Active Substance: TRASTUZUMAB
     Indication: BREAST CANCER
     Dosage: 104 MILLIGRAM/KILOGRAM, TOTAL DOSE 104 MG/KG
     Route: 065
  2. EPIRUBICIN [Suspect]
     Active Substance: EPIRUBICIN
     Indication: BREAST CANCER
     Dosage: 400 MILLIGRAM/SQ. METER, TOTAL DOSE 400 MG/M2
     Route: 065
  3. DOCETAXEL. [Suspect]
     Active Substance: DOCETAXEL
     Indication: BREAST CANCER
     Dosage: 300 MILLIGRAM/SQ. METER, TOTAL DOSE 300 MG/M2
     Route: 065
  4. CYCLOPHOSPHAMIDE. [Suspect]
     Active Substance: CYCLOPHOSPHAMIDE
     Indication: BREAST CANCER
     Dosage: 2000 MILLIGRAM/SQ. METER, TOTAL DOSE 2000 MG/M2
     Route: 065

REACTIONS (2)
  - Cardiac failure acute [Unknown]
  - Myocardial fibrosis [Unknown]
